FAERS Safety Report 23581493 (Version 1)
Quarter: 2024Q1

REPORT INFORMATION
  Report Type: Spontaneous
  Country: US (occurrence: None)
  Receive Date: 20240229
  Receipt Date: 20240229
  Transmission Date: 20240410
  Serious: Yes (unspecified)
  Sender: FDA-Public Use
  Company Number: None

PATIENT
  Age: 48 Year
  Sex: Female
  Weight: 88.9 kg

DRUGS (1)
  1. BUPROPION [Suspect]
     Active Substance: BUPROPION
     Indication: Weight decreased
     Dosage: FREQUENCY : TWICE A DAY;?
     Route: 048
     Dates: start: 20240112, end: 20240203

REACTIONS (5)
  - Joint dislocation [None]
  - Therapy cessation [None]
  - Tinnitus [None]
  - Taste disorder [None]
  - Bruxism [None]

NARRATIVE: CASE EVENT DATE: 20240203
